FAERS Safety Report 5639196-2 (Version None)
Quarter: 2008Q1

REPORT INFORMATION
  Report Type: 
  Country: None (occurrence: None)
  Receive Date: 20080226
  Receipt Date: 20080218
  Transmission Date: 20080703
  Serious: Yes (Other)
  Sender: FDA-Public Use
  Company Number: PHHY2008JP00567

PATIENT
  Age: 60 Year
  Sex: Male

DRUGS (4)
  1. CELLCEPT [Concomitant]
     Indication: RENAL TRANSPLANT
     Dosage: 1000 MG/D
     Route: 048
  2. PREDNISOLONE [Concomitant]
  3. CYCLOPHOSPHAMIDE [Concomitant]
  4. NEORAL [Suspect]
     Indication: RENAL TRANSPLANT
     Dosage: UNK, UNK
     Route: 048

REACTIONS (9)
  - BLOOD CREATININE INCREASED [None]
  - CYANOSIS [None]
  - EXTREMITY NECROSIS [None]
  - GAIT DISTURBANCE [None]
  - KIDNEY TRANSPLANT REJECTION [None]
  - PAIN IN EXTREMITY [None]
  - PERIPHERAL COLDNESS [None]
  - PERIPHERAL VASCULAR DISORDER [None]
  - SKIN EROSION [None]
